FAERS Safety Report 6465000-9 (Version None)
Quarter: 2009Q4

REPORT INFORMATION
  Report Type: 
  Country: None (occurrence: None)
  Receive Date: 20091123
  Receipt Date: 20091109
  Transmission Date: 20100525
  Serious: Yes (Hospitalization)
  Sender: FDA-Public Use
  Company Number: 2009AL007130

PATIENT
  Age: 55 Year
  Sex: Female

DRUGS (5)
  1. EPIRUBICIN HYDROCHLORIDE [Suspect]
     Indication: BREAST CANCER
     Dosage: 75 MG/M**2
  2. CYCLOPHOSPHAMIDE [Concomitant]
  3. DOCETAXEL [Concomitant]
  4. DEXAMETHASONE TAB [Concomitant]
  5. NEUPOGEN [Concomitant]

REACTIONS (14)
  - CELLULITIS GANGRENOUS [None]
  - CHOLECYSTITIS INFECTIVE [None]
  - CLOSTRIDIUM DIFFICILE SEPSIS [None]
  - ENTEROCOLITIS [None]
  - HAEMODIALYSIS [None]
  - HAEMODYNAMIC INSTABILITY [None]
  - LARGE INTESTINE PERFORATION [None]
  - NECROSIS [None]
  - NECROTISING FASCIITIS [None]
  - OVARIAN NECROSIS [None]
  - PNEUMATOSIS [None]
  - PNEUMATOSIS INTESTINALIS [None]
  - SALPINGO-OOPHORECTOMY UNILATERAL [None]
  - SUPERINFECTION [None]
